FAERS Safety Report 18244851 (Version 1)
Quarter: 2020Q3

REPORT INFORMATION
  Report Type: Spontaneous
  Country: CN (occurrence: CN)
  Receive Date: 20200908
  Receipt Date: 20200908
  Transmission Date: 20201103
  Serious: Yes (Hospitalization, Disabling)
  Sender: FDA-Public Use
  Company Number: CN-PURDUE-USA-2020-0164611

PATIENT
  Age: 80 Year
  Sex: Female
  Weight: 56 kg

DRUGS (1)
  1. OXYCONTIN [Suspect]
     Active Substance: OXYCODONE HYDROCHLORIDE
     Indication: ANALGESIC THERAPY
     Dosage: 10 MG, BID
     Route: 048
     Dates: start: 20200820, end: 20200823

REACTIONS (1)
  - Schizophreniform disorder [Recovered/Resolved]

NARRATIVE: CASE EVENT DATE: 20200823
